FAERS Safety Report 9355376 (Version 1)
Quarter: 2013Q2

REPORT INFORMATION
  Report Type: Spontaneous
  Country: US (occurrence: US)
  Receive Date: 20130619
  Receipt Date: 20130619
  Transmission Date: 20140414
  Serious: Yes (Death)
  Sender: FDA-Public Use
  Company Number: US-JNJFOC-20101203752

PATIENT
  Age: 62 Year
  Sex: Male
  Weight: 72.58 kg

DRUGS (1)
  1. REMICADE [Suspect]
     Indication: RHEUMATOID ARTHRITIS
     Route: 042
     Dates: start: 200807

REACTIONS (3)
  - Pulmonary fibrosis [Fatal]
  - Labyrinthitis [Not Recovered/Not Resolved]
  - Sinusitis [Not Recovered/Not Resolved]
